FAERS Safety Report 7625935-8 (Version None)
Quarter: 2011Q3

REPORT INFORMATION
  Report Type: 
  Country: None (occurrence: None)
  Receive Date: 20110721
  Receipt Date: 20110721
  Transmission Date: 20111222
  Serious: Yes (Other)
  Sender: FDA-Public Use
  Company Number: None

PATIENT
  Age: 49 Year
  Sex: Female
  Weight: 77.11 kg

DRUGS (1)
  1. BROMFENAC SODIUM [Suspect]
     Indication: RETINITIS PIGMENTOSA
     Dosage: 2 DROPS
     Route: 047
     Dates: start: 20110615, end: 20110720

REACTIONS (2)
  - PRODUCT FORMULATION ISSUE [None]
  - PRODUCT SUBSTITUTION ISSUE [None]
